FAERS Safety Report 4644323-X (Version None)
Quarter: 2005Q2

REPORT INFORMATION
  Report Type: 
  Country: None (occurrence: None)
  Receive Date: 20050331
  Receipt Date: 20041229
  Transmission Date: 20051028
  Serious: No
  Sender: FDA-Public Use
  Company Number: 04P-163-0284955-00

PATIENT
  Age: 69 Year
  Sex: Female
  Weight: 71.6683 kg

DRUGS (10)
  1. HUMIRA [Suspect]
     Indication: RHEUMATOID ARTHRITIS
     Dosage: 40 MG, 1 IN 2 WK, SUBCUTANEOUS
     Route: 058
     Dates: start: 20040901, end: 20041203
  2. CLOPIDOGREL BISULFATE [Concomitant]
  3. TRANDOLAPRIL [Concomitant]
  4. LEVOTHYROXINE SODIUM [Concomitant]
  5. PREDNISONE TAB [Concomitant]
  6. METHOTREXATE [Concomitant]
  7. FOLIC ACID [Concomitant]
  8. ESTROGENS CONJUGATED [Concomitant]
  9. ZOCOR [Concomitant]
  10. CILOSTAZOL [Concomitant]

REACTIONS (3)
  - FACIAL PAIN [None]
  - PNEUMONIA [None]
  - SINUSITIS [None]
